FAERS Safety Report 4977663-5 (Version None)
Quarter: 2006Q2

REPORT INFORMATION
  Report Type: 
  Country: None (occurrence: None)
  Receive Date: 20060414
  Receipt Date: 20060331
  Transmission Date: 20061013
  Serious: Yes (Death, Hospitalization)
  Sender: FDA-Public Use
  Company Number: CIP06000385

PATIENT
  Age: 81 Year
  Sex: Female

DRUGS (3)
  1. ACTONEL [Suspect]
     Indication: OSTEOPOROSIS
     Dosage: 2.5 MG DAILY, ORAL
     Route: 048
     Dates: start: 20020601
  2. CLINORIL [Suspect]
     Indication: PAIN
     Dosage: 300 MG UNKNOWN, ORAL
     Route: 048
     Dates: start: 20020101
  3. CLINORIL [Suspect]
     Indication: PAIN
     Dosage: 300 MG UNKNOWN, ORAL
     Route: 048
     Dates: start: 20060201

REACTIONS (17)
  - ABDOMINAL PAIN [None]
  - ARTHRALGIA [None]
  - BACK INJURY [None]
  - BACK PAIN [None]
  - C-REACTIVE PROTEIN INCREASED [None]
  - DYSPNOEA [None]
  - FALL [None]
  - GASTRIC MUCOSAL LESION [None]
  - GASTRIC ULCER HAEMORRHAGE [None]
  - GASTROINTESTINAL HAEMORRHAGE [None]
  - HAND FRACTURE [None]
  - INTERSTITIAL LUNG DISEASE [None]
  - PAIN IN EXTREMITY [None]
  - RENAL FAILURE ACUTE [None]
  - SHOCK HAEMORRHAGIC [None]
  - STRESS [None]
  - WHITE BLOOD CELL COUNT INCREASED [None]
